FAERS Safety Report 5953146-0 (Version None)
Quarter: 2008Q4

REPORT INFORMATION
  Report Type: 
  Country: None (occurrence: None)
  Receive Date: 20081114
  Receipt Date: 20081107
  Transmission Date: 20090506
  Serious: Yes (Death, Life-Threatening, Hospitalization)
  Sender: FDA-Public Use
  Company Number: FR-WYE-G02235608

PATIENT
  Sex: Male
  Weight: 50 kg

DRUGS (5)
  1. GEMTUZUMAB OZOGAMICIN [Suspect]
     Dosage: 3 MG/M^2 TOTAL DAILY
     Route: 042
     Dates: start: 20080905, end: 20080905
  2. GEMTUZUMAB OZOGAMICIN [Suspect]
     Dosage: 3 MG/M^2 TOTAL DAILY
     Route: 042
     Dates: start: 20080901, end: 20080901
  3. GEMTUZUMAB OZOGAMICIN [Suspect]
     Dosage: 3 MG/M^2 TOTAL DAILY
     Route: 042
     Dates: start: 20080911, end: 20080911
  4. CYTARABINE [Suspect]
     Route: 042
     Dates: start: 20080905, end: 20080911
  5. DAUNORUBICIN HCL [Suspect]
     Route: 042
     Dates: start: 20080905, end: 20080907

REACTIONS (6)
  - BRONCHOPULMONARY ASPERGILLOSIS [None]
  - CANDIDA SEPSIS [None]
  - CARDIAC FAILURE ACUTE [None]
  - ESCHERICHIA SEPSIS [None]
  - HEPATIC FAILURE [None]
  - RESPIRATORY DISTRESS [None]
